FAERS Safety Report 23565491 (Version 1)
Quarter: 2024Q1

REPORT INFORMATION
  Report Type: Spontaneous
  Country: US (occurrence: US)
  Receive Date: 20240226
  Receipt Date: 20240226
  Transmission Date: 20240409
  Serious: Yes (Other)
  Sender: FDA-Public Use
  Company Number: US-APOTEX-2024AP002552

PATIENT
  Age: 44 Year
  Sex: Female

DRUGS (2)
  1. RISPERIDONE [Suspect]
     Active Substance: RISPERIDONE
     Indication: Product used for unknown indication
     Dosage: UNK (SEVERAL YEARS)
     Route: 065
  2. LAMOTRIGINE [Suspect]
     Active Substance: LAMOTRIGINE
     Indication: Product used for unknown indication
     Dosage: UNK (SEVERAL YEARS)
     Route: 065

REACTIONS (4)
  - Myelopathy [Unknown]
  - Spinal cord compression [Unknown]
  - Tardive dyskinesia [Unknown]
  - Atlantoaxial subluxation [Unknown]
